FAERS Safety Report 8500113-9 (Version None)
Quarter: 2012Q3

REPORT INFORMATION
  Report Type: 
  Country: None (occurrence: None)
  Receive Date: 20120710
  Receipt Date: 20120703
  Transmission Date: 20120928
  Serious: Yes (Hospitalization, Other)
  Sender: FDA-Public Use
  Company Number: US-BAYER-2012-031646

PATIENT
  Age: 28 Year
  Sex: Female
  Weight: 61.224 kg

DRUGS (7)
  1. ATIVAN [Concomitant]
     Indication: PAIN
  2. MOTRIN [Concomitant]
  3. LOPRESSOR [Concomitant]
  4. ANTACIDS, OTHER COMBINATIONS [Concomitant]
  5. BETA BLOCKING AGENTS [Concomitant]
     Indication: HEART RATE ABNORMAL
  6. YASMIN [Suspect]
     Indication: CONTRACEPTION
     Dosage: UNK
     Dates: start: 20060301, end: 20060601
  7. IBUPROFEN (ADVIL) [Concomitant]

REACTIONS (4)
  - CORONARY ARTERY THROMBOSIS [None]
  - THROMBOSIS [None]
  - PAIN [None]
  - MYOCARDIAL INFARCTION [None]
